FAERS Safety Report 18471980 (Version 1)
Quarter: 2020Q4

REPORT INFORMATION
  Report Type: Spontaneous
  Country: US (occurrence: US)
  Receive Date: 20201105
  Receipt Date: 20201105
  Transmission Date: 20210114
  Serious: Yes (Hospitalization)
  Sender: FDA-Public Use
  Company Number: US-ROCHE-2707583

PATIENT
  Sex: Male

DRUGS (11)
  1. CARVEDILOL. [Concomitant]
     Active Substance: CARVEDILOL
  2. LEVOFLOXACIN. [Concomitant]
     Active Substance: LEVOFLOXACIN
  3. CLINDAMYCIN. [Concomitant]
     Active Substance: CLINDAMYCIN
  4. NORVASC [Concomitant]
     Active Substance: AMLODIPINE BESYLATE
  5. ALDACTONE [Concomitant]
     Active Substance: SPIRONOLACTONE
  6. AZITHROMYCIN ANHYDROUS. [Concomitant]
     Active Substance: AZITHROMYCIN ANHYDROUS
  7. ALBUTEROL. [Concomitant]
     Active Substance: ALBUTEROL
  8. IPRATROPIUM BROMIDE. [Concomitant]
     Active Substance: IPRATROPIUM BROMIDE
  9. ALBUTEROL SULFATE. [Concomitant]
     Active Substance: ALBUTEROL SULFATE
  10. DALIRESP [Concomitant]
     Active Substance: ROFLUMILAST
  11. XOLAIR [Suspect]
     Active Substance: OMALIZUMAB
     Indication: ASTHMA
     Route: 058

REACTIONS (1)
  - Blood potassium increased [Recovered/Resolved]
